FAERS Safety Report 24020233 (Version 1)
Quarter: 2024Q2

REPORT INFORMATION
  Report Type: Spontaneous
  Country: US (occurrence: US)
  Receive Date: 20240627
  Receipt Date: 20240627
  Transmission Date: 20240715
  Serious: Yes (Death, Hospitalization)
  Sender: FDA-Public Use
  Company Number: US-NORDICGR-056419

PATIENT
  Age: 43 Year
  Sex: Male

DRUGS (2)
  1. METHOTREXATE [Suspect]
     Active Substance: METHOTREXATE
     Indication: Psoriasis
     Route: 065
  2. KEFLEX [Concomitant]
     Active Substance: CEPHALEXIN
     Indication: Urinary tract infection
     Route: 065

REACTIONS (10)
  - Pancytopenia [Fatal]
  - Septic shock [Fatal]
  - Intentional product misuse [Fatal]
  - Pharyngeal ulceration [Unknown]
  - Skin lesion [Unknown]
  - Hyperbilirubinaemia [Unknown]
  - Urinary tract infection [Unknown]
  - Intentional overdose [Fatal]
  - Off label use [Unknown]
  - Acute kidney injury [Unknown]
